FAERS Safety Report 6385767-8 (Version None)
Quarter: 2009Q4

REPORT INFORMATION
  Report Type: 
  Country: None (occurrence: None)
  Receive Date: 20091002
  Receipt Date: 20081024
  Transmission Date: 20100525
  Serious: No
  Sender: FDA-Public Use
  Company Number: US-ASTRAZENECA-2008UW21497

PATIENT
  Age: 68 Year
  Sex: Female
  Weight: 93.9 kg

DRUGS (13)
  1. ARIMIDEX [Suspect]
     Indication: BREAST CANCER FEMALE
     Route: 048
  2. NEXIUM [Concomitant]
     Route: 048
  3. TOPROL-XL [Concomitant]
     Route: 048
  4. TOPROL-XL [Concomitant]
     Route: 048
  5. LISINOPRIL [Concomitant]
  6. BONIVA [Concomitant]
     Dosage: EVERY THREE MONTHS
  7. CALCIUM [Concomitant]
  8. ATIVAN [Concomitant]
     Dosage: 1 MG
  9. ACIDOPHILUS [Concomitant]
  10. VITAMIN B-12 [Concomitant]
     Dosage: EVERY MONTH
  11. MECLIZINE [Concomitant]
     Dosage: AS NEEDED
  12. ZOCOR [Concomitant]
  13. CELEBREX [Concomitant]

REACTIONS (3)
  - ARTHRITIS [None]
  - HOT FLUSH [None]
  - SKIN DISORDER [None]
